FAERS Safety Report 6159511-3 (Version None)
Quarter: 2009Q2

REPORT INFORMATION
  Report Type: 
  Country: None (occurrence: None)
  Receive Date: 20090420
  Receipt Date: 20080904
  Transmission Date: 20091009
  Serious: No
  Sender: FDA-Public Use
  Company Number: US-ABBOTT-08P-163-0474229-00

PATIENT
  Sex: Male
  Weight: 51.756 kg

DRUGS (1)
  1. LUPRON DEPOT-PED [Suspect]
     Indication: PRECOCIOUS PUBERTY
     Route: 050
     Dates: start: 20071001

REACTIONS (4)
  - ACNE [None]
  - GYNAECOMASTIA [None]
  - HAIR DISORDER [None]
  - TESTICULAR DISORDER [None]
